FAERS Safety Report 18942904 (Version 1)
Quarter: 2021Q1

REPORT INFORMATION
  Report Type: Spontaneous
  Country: TW (occurrence: TW)
  Receive Date: 20210225
  Receipt Date: 20210225
  Transmission Date: 20210420
  Serious: Yes (Death)
  Sender: FDA-Public Use
  Company Number: TW-UNICHEM PHARMACEUTICALS (USA) INC-UCM202102-000151

PATIENT
  Age: 69 Year
  Sex: Female

DRUGS (1)
  1. AMIODARONE HYDROCHLORIDE. [Suspect]
     Active Substance: AMIODARONE HYDROCHLORIDE
     Indication: TACHYARRHYTHMIA
     Dosage: ESTIMATED TOTAL CUMULATIVE DOSE EXPOSURE OF 360 G

REACTIONS (3)
  - Steatohepatitis [Fatal]
  - Acute on chronic liver failure [Fatal]
  - Abscess [Fatal]
